FAERS Safety Report 18218122 (Version 1)
Quarter: 2020Q3

REPORT INFORMATION
  Report Type: Spontaneous
  Country: US (occurrence: US)
  Receive Date: 20200831
  Receipt Date: 20200831
  Transmission Date: 20201103
  Serious: Yes (Hospitalization)
  Sender: FDA-Public Use
  Company Number: None

PATIENT
  Sex: Female

DRUGS (28)
  1. CLOBETASOL [Concomitant]
     Active Substance: CLOBETASOL
  2. LISINOPRIL. [Concomitant]
     Active Substance: LISINOPRIL
  3. PERPHENAZINE. [Concomitant]
     Active Substance: PERPHENAZINE
  4. CEFOROXIME [Concomitant]
  5. ETODOLAC. [Concomitant]
     Active Substance: ETODOLAC
  6. PREDNISONE. [Concomitant]
     Active Substance: PREDNISONE
  7. LUCENTIS [Suspect]
     Active Substance: RANIBIZUMAB
     Indication: MACULAR DEGENERATION
     Dosage: ?          OTHER FREQUENCY:Q4?5WK;?
     Route: 031
     Dates: start: 20200727
  8. DULOXETINE. [Concomitant]
     Active Substance: DULOXETINE
  9. LORAZEPAM. [Concomitant]
     Active Substance: LORAZEPAM
  10. SYNTHROID [Concomitant]
     Active Substance: LEVOTHYROXINE SODIUM
  11. TAMIFLU [Concomitant]
     Active Substance: OSELTAMIVIR PHOSPHATE
  12. TYLENOL [Concomitant]
     Active Substance: ACETAMINOPHEN
  13. CIPROFLOXACIN. [Concomitant]
     Active Substance: CIPROFLOXACIN
  14. DIAZEPAM. [Concomitant]
     Active Substance: DIAZEPAM
  15. METHYLPRED [Concomitant]
     Active Substance: METHYLPREDNISOLONE
  16. QUETIAPINE. [Concomitant]
     Active Substance: QUETIAPINE
  17. TRIAMCINOLON CRE [Concomitant]
  18. DIPHEN/ATROP [Concomitant]
     Active Substance: ATROPINE SULFATE\DIPHENOXYLATE
  19. MUPIROCIN. [Concomitant]
     Active Substance: MUPIROCIN
  20. LISINOPRIL. [Concomitant]
     Active Substance: LISINOPRIL
  21. MISOPROSTOL. [Concomitant]
     Active Substance: MISOPROSTOL
  22. NITROFUR MAC [Concomitant]
     Active Substance: NITROFURANTOIN
  23. OMEPRAZOLE. [Concomitant]
     Active Substance: OMEPRAZOLE
  24. SMZ/TMP DS [Concomitant]
     Active Substance: SULFAMETHOXAZOLE\TRIMETHOPRIM
  25. VENTOLIN HFA [Concomitant]
     Active Substance: ALBUTEROL SULFATE
  26. LEVOTHYROXIN [Concomitant]
     Active Substance: LEVOTHYROXINE
  27. NITROFURANTIN [Concomitant]
     Active Substance: NITROFURANTOIN
  28. THIOTHIXENE. [Concomitant]
     Active Substance: THIOTHIXENE

REACTIONS (1)
  - Lung operation [None]
